FAERS Safety Report 4917326-5 (Version None)
Quarter: 2006Q1

REPORT INFORMATION
  Report Type: 
  Country: None (occurrence: None)
  Receive Date: 20060221
  Receipt Date: 20040223
  Transmission Date: 20060701
  Serious: Yes (Hospitalization, Disabling)
  Sender: FDA-Public Use
  Company Number: NO-MERCK-0402NOR00018

PATIENT
  Age: 61 Year
  Sex: Male

DRUGS (6)
  1. SINGULAIR [Suspect]
     Indication: ASTHMA
     Route: 048
     Dates: start: 20031008, end: 20041201
  2. PREDNISOLONE [Concomitant]
     Indication: ASTHMA
     Route: 048
     Dates: start: 20031028, end: 20031101
  3. BUDESONIDE [Concomitant]
     Indication: ASTHMA
     Route: 055
     Dates: start: 20031120
  4. BUDESONIDE [Concomitant]
     Route: 055
     Dates: end: 20031120
  5. FORMOTEROL FUMARATE [Concomitant]
     Indication: ASTHMA
     Route: 055
  6. BUDESONIDE [Concomitant]
     Route: 055
     Dates: start: 20001019

REACTIONS (4)
  - ALLERGIC GRANULOMATOUS ANGIITIS [None]
  - EOSINOPHILIA [None]
  - NEUROPATHY [None]
  - VASCULITIS [None]
